FAERS Safety Report 9870212 (Version 1)
Quarter: 2014Q1

REPORT INFORMATION
  Report Type: Spontaneous
  Country: US (occurrence: None)
  Receive Date: 20140131
  Receipt Date: 20140131
  Transmission Date: 20141002
  Serious: No
  Sender: FDA-Public Use
  Company Number: CIO4003590

PATIENT
  Age: 83 Year
  Sex: Male

DRUGS (2)
  1. NYQUIL COLD AND FLU [Suspect]
     Indication: NASOPHARYNGITIS
  2. NYQUIL COLD AND FLU [Suspect]
     Indication: OROPHARYNGEAL PAIN

REACTIONS (2)
  - Loss of consciousness [None]
  - Off label use [None]
